FAERS Safety Report 9551419 (Version 1)
Quarter: 2013Q3

REPORT INFORMATION
  Report Type: Spontaneous
  Country: US (occurrence: None)
  Receive Date: 20130923
  Receipt Date: 20130923
  Transmission Date: 20140515
  Serious: Yes (Hospitalization)
  Sender: FDA-Public Use
  Company Number: None

PATIENT
  Age: 72 Year
  Sex: Male
  Weight: 87.8 kg

DRUGS (2)
  1. CAPECITABINE [Suspect]
     Indication: GASTRIC CANCER
     Dosage: OTHER
     Route: 048
     Dates: start: 20111205, end: 20111228
  2. EPIRUBICIN [Suspect]
     Indication: GASTRIC CANCER
     Route: 042
     Dates: start: 20111227, end: 20111227

REACTIONS (7)
  - Neutrophil count abnormal [None]
  - Thrombocytopenia [None]
  - Leukopenia [None]
  - Diarrhoea [None]
  - Nausea [None]
  - Vomiting [None]
  - Decreased appetite [None]
